FAERS Safety Report 9757488 (Version 1)
Quarter: 2013Q4

REPORT INFORMATION
  Report Type: Spontaneous
  Country: ES (occurrence: ES)
  Receive Date: 20131215
  Receipt Date: 20131215
  Transmission Date: 20140711
  Serious: Yes (Hospitalization)
  Sender: FDA-Public Use
  Company Number: ES-009507513-1312ESP005933

PATIENT
  Age: 72 Year
  Sex: Female

DRUGS (1)
  1. TRUSOPT 20 MG/ML COLIRIO EN SOLUCI?N [Suspect]
     Route: 047
     Dates: start: 2012, end: 201305

REACTIONS (2)
  - Anxiety [Unknown]
  - Eye irritation [Unknown]
